FAERS Safety Report 24128166 (Version 2)
Quarter: 2024Q3

REPORT INFORMATION
  Report Type: Report from Study
  Country: US (occurrence: US)
  Receive Date: 20240723
  Receipt Date: 20240809
  Transmission Date: 20241017
  Serious: Yes (Hospitalization, Other)
  Sender: AEGERION
  Company Number: US-AMRYT PHARMACEUTICALS DAC-AEGR007261

PATIENT
  Age: 66 Year
  Sex: Female

DRUGS (34)
  1. MYALEPT [Suspect]
     Active Substance: METRELEPTIN
     Indication: Familial partial lipodystrophy
     Dosage: UNK
     Dates: start: 20180711
  2. MYALEPT [Suspect]
     Active Substance: METRELEPTIN
     Dosage: 2.5 MILLIGRAM, QD
     Dates: start: 20180725, end: 20180911
  3. MYALEPT [Suspect]
     Active Substance: METRELEPTIN
     Dosage: 1.25 MILLIGRAM, QD
     Dates: start: 20180912, end: 20181031
  4. MYALEPT [Suspect]
     Active Substance: METRELEPTIN
     Dosage: 2.5 MILLIGRAM, QD
     Dates: start: 20181101, end: 20200305
  5. MYALEPT [Suspect]
     Active Substance: METRELEPTIN
     Dosage: 1.25 MILLIGRAM, QD
     Dates: start: 20200306
  6. ACETAMINOPHEN [Concomitant]
     Active Substance: ACETAMINOPHEN
     Indication: Arthralgia
     Dosage: 325 MILLIGRAM, QID
     Route: 048
     Dates: start: 20170901
  7. ACETAMINOPHEN [Concomitant]
     Active Substance: ACETAMINOPHEN
     Indication: Pain
     Dosage: 650 MILLIGRAM, PRN Q 4 HRS
     Route: 048
     Dates: start: 20211202, end: 20211203
  8. TYLENOL PM [Concomitant]
     Active Substance: ACETAMINOPHEN\DIPHENHYDRAMINE
     Indication: Arthralgia
     Dosage: 1 TABLET, PRN
     Dates: start: 20170901
  9. RESTASIS [Concomitant]
     Active Substance: CYCLOSPORINE
     Indication: Hypersensitivity
     Dosage: 0.05 PERCENT, BID
     Route: 047
     Dates: start: 20160524
  10. TRICOR [Concomitant]
     Active Substance: FENOFIBRATE
     Indication: Hyperlipidaemia
     Dosage: 145 MILLIGRAM, QD
     Route: 048
     Dates: start: 20160524
  11. MOTRIN [Concomitant]
     Active Substance: IBUPROFEN
     Indication: Arthralgia
     Dosage: 600 MILLIGRAM, QID
     Route: 048
     Dates: start: 20180219
  12. KETOTIFEN FUMARATE [Concomitant]
     Active Substance: KETOTIFEN FUMARATE
     Indication: Hypersensitivity
     Dosage: 1 DROP, PRN
     Route: 047
     Dates: start: 20180524
  13. DESOXYEPHEDRINE HCL [Concomitant]
     Indication: Hypersensitivity
     Dosage: 1 PUFF, PRN
     Route: 045
     Dates: start: 20180524
  14. SYNTHROID [Concomitant]
     Active Substance: LEVOTHYROXINE SODIUM
     Indication: Hypothyroidism
     Dosage: 50 MICROGRAM, QD
     Route: 048
     Dates: start: 20160524
  15. PAMELOR [Concomitant]
     Active Substance: NORTRIPTYLINE HYDROCHLORIDE
     Indication: Depression
     Dosage: 10 MILLIGRAM, QD
     Route: 048
     Dates: start: 20170901
  16. PRILOSEC [Concomitant]
     Active Substance: OMEPRAZOLE MAGNESIUM
     Indication: Gastrooesophageal reflux disease
     Dosage: 20 MILLIGRAM, PRN
     Route: 048
     Dates: start: 20160524
  17. MIRALAX [Concomitant]
     Active Substance: POLYETHYLENE GLYCOL 3350
     Indication: Constipation
     Dosage: 17 GRAM, PRN
     Route: 048
     Dates: start: 20170701
  18. TYLENOL SINUS [PARACETAMOL;PSEUDOEPHEDRINE HYDROCHLORIDE] [Concomitant]
     Indication: Hypersensitivity
     Dosage: 1 TABLET, PRN
     Route: 048
     Dates: start: 20170901
  19. ZOCOR [Concomitant]
     Active Substance: SIMVASTATIN
     Indication: Hyperlipidaemia
     Dosage: 40 MILLIGRAM, QD
     Route: 048
     Dates: start: 20180301
  20. DEXTRIN\WHEAT [Concomitant]
     Active Substance: ICODEXTRIN\WHEAT
     Indication: Constipation
     Dosage: 3 GRAM, QD
     Route: 048
     Dates: start: 20171026
  21. OMEGA-3 FATTY ACIDS [Concomitant]
     Active Substance: OMEGA-3 FATTY ACIDS
     Indication: Hypertriglyceridaemia
     Dosage: 1 CAPSULE, QD
     Route: 048
  22. HYDROCORTISONE ACETATE [Concomitant]
     Active Substance: HYDROCORTISONE ACETATE
     Indication: Haemorrhoids
     Dosage: 2.5 PERCENT, BID
     Route: 061
     Dates: start: 20200915
  23. LOSARTAN [Concomitant]
     Active Substance: LOSARTAN\LOSARTAN POTASSIUM
     Indication: Cardiomyopathy
     Dosage: 25 MILLIGRAM, QD
     Route: 048
     Dates: start: 20200910
  24. LACTOBACILLUS RHAMNOSUS [Concomitant]
     Active Substance: LACTOBACILLUS RHAMNOSUS
     Indication: Gastrooesophageal reflux disease
     Dosage: 1 CAPSULE, QD
     Route: 048
     Dates: start: 20191121
  25. ATORVASTATIN [Concomitant]
     Active Substance: ATORVASTATIN
     Indication: Hypertriglyceridaemia
     Dosage: 40 MILLIGRAM, QD
     Route: 048
     Dates: start: 20191017, end: 20230307
  26. ATORVASTATIN [Concomitant]
     Active Substance: ATORVASTATIN
     Dosage: 80 MILLIGRAM, QD
     Route: 048
     Dates: start: 20230307, end: 20240314
  27. ATORVASTATIN [Concomitant]
     Active Substance: ATORVASTATIN
     Dosage: 20 MILLIGRAM, QD
     Route: 048
     Dates: start: 20240315
  28. ERGOCALCIFEROL [Concomitant]
     Active Substance: ERGOCALCIFEROL
     Indication: Supplementation therapy
     Dosage: 1250 MCG (1 TABLET) , QD
     Route: 048
     Dates: start: 20230112
  29. METOPROLOL SUCCINATE [Concomitant]
     Active Substance: METOPROLOL SUCCINATE
     Indication: Cardiomyopathy
     Dosage: 25 MILLIGRAM, QD
     Route: 048
     Dates: start: 20200305, end: 20220927
  30. METOPROLOL SUCCINATE [Concomitant]
     Active Substance: METOPROLOL SUCCINATE
     Dosage: 50 MILLIGRAM, QD
     Route: 048
     Dates: start: 20220927
  31. DAPAGLIFLOZIN [Concomitant]
     Active Substance: DAPAGLIFLOZIN
     Indication: Diabetes mellitus
     Dosage: 10 MILLIGRAM, QD
     Route: 048
     Dates: start: 20230413
  32. EVOLOCUMAB [Concomitant]
     Active Substance: EVOLOCUMAB
     Indication: Type V hyperlipidaemia
     Dosage: 140 MILLIGRAM, EVERY FORTEEN DAYS
     Route: 058
     Dates: start: 20240103
  33. LORAZEPAM [Concomitant]
     Active Substance: LORAZEPAM
     Indication: Anxiety
     Dosage: 0.5 MILLIGRAM, BID,PRN
     Route: 048
     Dates: start: 20240405
  34. NORTRIPTYLINE [Concomitant]
     Active Substance: NORTRIPTYLINE
     Indication: Depression
     Dosage: 10 MILLIGRAM, QD
     Route: 048
     Dates: start: 20240112

REACTIONS (4)
  - Ventricular tachycardia [Recovered/Resolved]
  - Cerumen impaction [Recovered/Resolved]
  - Arthralgia [Recovered/Resolved]
  - Off label use [Unknown]

NARRATIVE: CASE EVENT DATE: 20240201
